FAERS Safety Report 25469567 (Version 2)
Quarter: 2025Q2

REPORT INFORMATION
  Report Type: Spontaneous
  Country: BG (occurrence: BG)
  Receive Date: 20250623
  Receipt Date: 20250625
  Transmission Date: 20250716
  Serious: Yes (Other)
  Sender: DAIICHI
  Company Number: BG-AstraZeneca-CH-00891321A

PATIENT
  Age: 61 Year
  Sex: Female

DRUGS (1)
  1. TRASTUZUMAB DERUXTECAN [Suspect]
     Active Substance: TRASTUZUMAB DERUXTECAN
     Indication: HER2 low breast cancer
     Dosage: 5.4 MILLIGRAM/KILOGRAM
     Route: 042

REACTIONS (5)
  - Ascites [Recovered/Resolved with Sequelae]
  - Malignant neoplasm progression [Recovered/Resolved with Sequelae]
  - Metastases to liver [Unknown]
  - Discharge [Unknown]
  - Vomiting [Unknown]
